FAERS Safety Report 24372190 (Version 1)
Quarter: 2024Q3

REPORT INFORMATION
  Report Type: Spontaneous
  Country: ES (occurrence: ES)
  Receive Date: 20240927
  Receipt Date: 20240927
  Transmission Date: 20241016
  Serious: Yes (Other)
  Sender: BAYER
  Company Number: ES-BAYER-2024A137167

PATIENT
  Age: 65 Year
  Sex: Male

DRUGS (1)
  1. IOPROMIDE [Suspect]
     Active Substance: IOPROMIDE
     Indication: Computerised tomogram
     Dosage: 95 ML, ONCE; A RATE OF 2 ML/S

REACTIONS (1)
  - Noninfective sialoadenitis [Recovered/Resolved]
